FAERS Safety Report 18931413 (Version 1)
Quarter: 2021Q1

REPORT INFORMATION
  Report Type: Spontaneous
  Country: US (occurrence: US)
  Receive Date: 20210224
  Receipt Date: 20210224
  Transmission Date: 20210420
  Serious: No
  Sender: FDA-Public Use
  Company Number: US-ELI_LILLY_AND_COMPANY-US202102008580

PATIENT
  Sex: Female

DRUGS (2)
  1. LYUMJEV [Suspect]
     Active Substance: INSULIN LISPRO-AABC
     Dosage: 15 U, DAILY
     Route: 058
  2. LYUMJEV [Suspect]
     Active Substance: INSULIN LISPRO-AABC
     Indication: TYPE 1 DIABETES MELLITUS
     Dosage: 25 U, DAILY
     Route: 058

REACTIONS (2)
  - Blood glucose decreased [Recovered/Resolved]
  - Wrong technique in product usage process [Recovered/Resolved]
